FAERS Safety Report 16594405 (Version 1)
Quarter: 2019Q3

REPORT INFORMATION
  Report Type: Spontaneous
  Country: FR (occurrence: FR)
  Receive Date: 20190718
  Receipt Date: 20190718
  Transmission Date: 20191004
  Serious: Yes (Life-Threatening, Hospitalization)
  Sender: FDA-Public Use
  Company Number: FR-TEVA-2019-FR-1078992

PATIENT
  Age: 72 Year
  Sex: Female
  Weight: 65 kg

DRUGS (5)
  1. AMLOR 5 MG, G?LULE [Suspect]
     Active Substance: AMLODIPINE BESYLATE
     Indication: SUICIDE ATTEMPT
     Dosage: 20DOSAGE FORMS PER DAY
     Route: 048
     Dates: start: 20180307, end: 20180307
  2. LERCANIDIPINE (CHLORHYDRATE DE) [Suspect]
     Active Substance: LERCANIDIPINE HYDROCHLORIDE
     Indication: SUICIDE ATTEMPT
     Dosage: 30DOSAGE FORM PER DAY
     Route: 048
     Dates: start: 20180307, end: 20180307
  3. ZOPICLONE [Suspect]
     Active Substance: ZOPICLONE
     Indication: SUICIDE ATTEMPT
     Dosage: 7DOSAGE FORMS PER DAY
     Route: 048
     Dates: start: 20180307, end: 20180307
  4. SOTALOL (CHLORHYDRATE DE) [Suspect]
     Active Substance: SOTALOL
     Indication: SUICIDE ATTEMPT
     Dosage: 16DOSAGE FORMS PER DAY
     Route: 048
     Dates: start: 20180307, end: 20180307
  5. MIRTAZAPINE. [Suspect]
     Active Substance: MIRTAZAPINE
     Indication: SUICIDE ATTEMPT
     Dosage: 6DOSAGE FORMS PER DAY
     Route: 048
     Dates: start: 20180307, end: 20180307

REACTIONS (6)
  - Hypotension [Recovered/Resolved]
  - Hypokalaemia [Recovered/Resolved]
  - Toxicity to various agents [Recovered/Resolved]
  - Atrioventricular block [Recovered/Resolved]
  - Electrocardiogram QT prolonged [Recovered/Resolved]
  - Somnolence [Recovered/Resolved]

NARRATIVE: CASE EVENT DATE: 20180307
